FAERS Safety Report 12728350 (Version 1)
Quarter: 2016Q3

REPORT INFORMATION
  Report Type: Spontaneous
  Country: US (occurrence: US)
  Receive Date: 20160907
  Receipt Date: 20160907
  Transmission Date: 20161109
  Serious: Yes (Hospitalization)
  Sender: FDA-Public Use
  Company Number: None

PATIENT
  Age: 91 Year
  Sex: Female
  Weight: 85 kg

DRUGS (1)
  1. LEVOFLOXACIN. [Suspect]
     Active Substance: LEVOFLOXACIN
     Indication: URINARY TRACT INFECTION
     Dosage: OTHER STRENGTH:;OTHER DOSE:1 TABLET;OTHER FREQUENCY: 3 TIMES A DAY;OTHER ROUTE: ORAL
     Route: 048
     Dates: start: 20160831, end: 20160902

REACTIONS (10)
  - Psychotic disorder [None]
  - Insomnia [None]
  - Anxiety [None]
  - Hallucination [None]
  - Similar reaction on previous exposure to drug [None]
  - Confusional state [None]
  - Documented hypersensitivity to administered product [None]
  - Agitation [None]
  - Aggression [None]
  - Logorrhoea [None]

NARRATIVE: CASE EVENT DATE: 20160831
